FAERS Safety Report 5807953-5 (Version None)
Quarter: 2008Q3

REPORT INFORMATION
  Report Type: 
  Country: None (occurrence: None)
  Receive Date: 20080711
  Receipt Date: 20080630
  Transmission Date: 20090109
  Serious: Yes (Hospitalization)
  Sender: FDA-Public Use
  Company Number: SE-PFIZER INC-2008044462

PATIENT
  Age: 80 Year
  Sex: Female

DRUGS (1)
  1. LYRICA [Suspect]
     Indication: OEDEMA PERIPHERAL

REACTIONS (5)
  - ABDOMINAL PAIN [None]
  - ANXIETY [None]
  - CRYING [None]
  - DIARRHOEA [None]
  - VOLVULUS OF SMALL BOWEL [None]
